FAERS Safety Report 6675180-8 (Version None)
Quarter: 2010Q2

REPORT INFORMATION
  Report Type: 
  Country: None (occurrence: None)
  Receive Date: 20100409
  Receipt Date: 20100330
  Transmission Date: 20101027
  Serious: Yes (Other)
  Sender: FDA-Public Use
  Company Number: US-JNJFOC-20100110340

PATIENT
  Sex: Female

DRUGS (2)
  1. TYLENOL [Suspect]
     Route: 048
  2. TYLENOL [Suspect]
     Indication: PAIN
     Dosage: ^EVERYDAY FOR YEARS^
     Route: 048

REACTIONS (5)
  - LIP PAIN [None]
  - MOUTH HAEMORRHAGE [None]
  - ORAL FUNGAL INFECTION [None]
  - OROPHARYNGEAL PAIN [None]
  - PRODUCT QUALITY ISSUE [None]
